FAERS Safety Report 10582910 (Version 1)
Quarter: 2014Q4

REPORT INFORMATION
  Report Type: Report from Study
  Country: US (occurrence: US)
  Receive Date: 20141114
  Receipt Date: 20141114
  Transmission Date: 20150529
  Serious: Yes (Hospitalization, Other)
  Sender: FDA-Public Use
  Company Number: US-AMGEN-USASL2014086720

PATIENT
  Age: 63 Year
  Sex: Female

DRUGS (5)
  1. ENBREL [Suspect]
     Active Substance: ETANERCEPT
     Indication: RHEUMATOID ARTHRITIS
     Dosage: 50 MG, QWK
     Route: 065
     Dates: start: 2004
  2. DIAZEPAM. [Concomitant]
     Active Substance: DIAZEPAM
     Dosage: UNK
  3. CORTIZONE                          /00028601/ [Concomitant]
     Active Substance: HYDROCORTISONE
     Dosage: UNK
  4. METHOTREXATE [Concomitant]
     Active Substance: METHOTREXATE
     Dosage: UNK
  5. PLAQUENIL [Concomitant]
     Active Substance: HYDROXYCHLOROQUINE SULFATE
     Dosage: UNK

REACTIONS (9)
  - Foot deformity [Not Recovered/Not Resolved]
  - Procedural pain [Recovered/Resolved]
  - Gait disturbance [Not Recovered/Not Resolved]
  - Neuropathy peripheral [Not Recovered/Not Resolved]
  - Dizziness [Not Recovered/Not Resolved]
  - Deformity [Not Recovered/Not Resolved]
  - Joint stiffness [Not Recovered/Not Resolved]
  - Hand deformity [Not Recovered/Not Resolved]
  - Wound infection staphylococcal [Recovered/Resolved]

NARRATIVE: CASE EVENT DATE: 2009
